FAERS Safety Report 21378415 (Version 1)
Quarter: 2022Q3

REPORT INFORMATION
  Report Type: Report from Study
  Country: US (occurrence: US)
  Receive Date: 20220927
  Receipt Date: 20220927
  Transmission Date: 20221027
  Serious: Yes (Other)
  Sender: FDA-Public Use
  Company Number: US-ABBVIE-4129968

PATIENT
  Sex: Male

DRUGS (3)
  1. VENCLEXTA [Suspect]
     Active Substance: VENETOCLAX
     Indication: Gastrointestinal carcinoma
     Dosage: DAY ONE
     Route: 048
  2. VENCLEXTA [Suspect]
     Active Substance: VENETOCLAX
     Indication: Gastrointestinal carcinoma
     Dosage: DAY TWO
     Route: 048
  3. VENCLEXTA [Suspect]
     Active Substance: VENETOCLAX
     Indication: Gastrointestinal carcinoma
     Dosage: FOUR TABLETS BY MOUTH DAILY THEREAFTER
     Route: 048

REACTIONS (2)
  - Leukaemia [Unknown]
  - Off label use [Unknown]
